FAERS Safety Report 15686442 (Version 2)
Quarter: 2019Q1

REPORT INFORMATION
  Report Type: Spontaneous
  Country: US (occurrence: US)
  Receive Date: 20181204
  Receipt Date: 20190301
  Transmission Date: 20190417
  Serious: Yes (Other)
  Sender: FDA-Public Use
  Company Number: US-PFIZER INC-2018492261

PATIENT
  Age: 76 Year
  Sex: Female
  Weight: 71.67 kg

DRUGS (2)
  1. XELJANZ [Suspect]
     Active Substance: TOFACITINIB CITRATE
     Indication: RHEUMATOID ARTHRITIS
     Dosage: 5 MG, 2X/DAY
     Route: 048
     Dates: start: 201808, end: 20181125
  2. ROSUVASTATIN. [Concomitant]
     Active Substance: ROSUVASTATIN
     Indication: BLOOD CHOLESTEROL ABNORMAL
     Dosage: 5 MG, 1X/DAY
     Route: 048
     Dates: start: 201808

REACTIONS (7)
  - Epistaxis [Unknown]
  - Blood cholesterol increased [Unknown]
  - Cataract [Recovering/Resolving]
  - Speech disorder [Unknown]
  - Limb injury [Unknown]
  - Pain in extremity [Unknown]
  - Sinus disorder [Recovering/Resolving]

NARRATIVE: CASE EVENT DATE: 201810
